FAERS Safety Report 7921456-3 (Version None)
Quarter: 2011Q4

REPORT INFORMATION
  Report Type: 
  Country: None (occurrence: None)
  Receive Date: 20111117
  Receipt Date: 20111108
  Transmission Date: 20120403
  Serious: Yes (Other)
  Sender: FDA-Public Use
  Company Number: US-ASTRAZENECA-2011SE67506

PATIENT
  Age: 30 Year
  Sex: Female
  Weight: 60.8 kg

DRUGS (3)
  1. SEROQUEL XR [Suspect]
     Route: 048
  2. SEROQUEL XR [Suspect]
     Route: 048
     Dates: start: 20100101
  3. SEROQUEL XR [Suspect]
     Indication: BIPOLAR DISORDER
     Route: 048

REACTIONS (5)
  - LIGAMENT SPRAIN [None]
  - BIPOLAR DISORDER [None]
  - MATERNAL EXPOSURE BEFORE PREGNANCY [None]
  - ABORTION SPONTANEOUS [None]
  - THERAPY CESSATION [None]
